FAERS Safety Report 4849390-6 (Version None)
Quarter: 2005Q4

REPORT INFORMATION
  Report Type: 
  Country: None (occurrence: None)
  Receive Date: 20051207
  Receipt Date: 20051117
  Transmission Date: 20060501
  Serious: Yes (Hospitalization)
  Sender: FDA-Public Use
  Company Number: 2005BI020902

PATIENT
  Age: 68 Year
  Sex: Male

DRUGS (1)
  1. AVONEX [Suspect]
     Indication: MULTIPLE SCLEROSIS
     Dosage: 30 UG; QW; IM
     Route: 030
     Dates: start: 20001108

REACTIONS (5)
  - BENIGN PROSTATIC HYPERPLASIA [None]
  - CHILLS [None]
  - HEADACHE [None]
  - MUSCULOSKELETAL STIFFNESS [None]
  - PYREXIA [None]
